FAERS Safety Report 21977292 (Version 1)
Quarter: 2023Q1

REPORT INFORMATION
  Report Type: Spontaneous
  Country: CA (occurrence: CA)
  Receive Date: 20230210
  Receipt Date: 20230210
  Transmission Date: 20230418
  Serious: Yes (Other)
  Sender: FDA-Public Use
  Company Number: CA-TEVA-2023-CA-2852028

PATIENT
  Age: 39 Year
  Sex: Female
  Weight: 225 kg

DRUGS (1)
  1. BUPROPION [Suspect]
     Active Substance: BUPROPION
     Indication: Depression
     Dosage: 150 MILLIGRAM DAILY;
     Route: 048

REACTIONS (3)
  - Chest pain [Recovered/Resolved]
  - Drug-induced liver injury [Recovered/Resolved]
  - Transaminases increased [Recovered/Resolved]
